FAERS Safety Report 5333666-2 (Version None)
Quarter: 2007Q2

REPORT INFORMATION
  Report Type: 
  Country: None (occurrence: None)
  Receive Date: 20070524
  Receipt Date: 20070522
  Transmission Date: 20071010
  Serious: Yes (Hospitalization)
  Sender: FDA-Public Use
  Company Number: A0652372A

PATIENT
  Sex: Male

DRUGS (11)
  1. ADVAIR DISKUS 100/50 [Suspect]
     Indication: CHRONIC OBSTRUCTIVE PULMONARY DISEASE
     Dosage: 1PUFF TWICE PER DAY
     Route: 055
  2. ATROVENT [Concomitant]
  3. THEOPHYLLINE [Concomitant]
  4. ACCOLATE [Concomitant]
  5. HYDROXYZINE HYDROCHLORIDE [Concomitant]
  6. NEURONTIN [Concomitant]
  7. PENTOXIFYLLINE [Concomitant]
  8. ALLEGRA [Concomitant]
  9. FOLIC ACID [Concomitant]
  10. UNKNOWN [Concomitant]
  11. ALBUTEROL [Concomitant]

REACTIONS (9)
  - ARTHRALGIA [None]
  - ASTHMA [None]
  - INFECTION [None]
  - MUSCULOSKELETAL PAIN [None]
  - NERVOUSNESS [None]
  - PARAESTHESIA [None]
  - PNEUMONIA [None]
  - PRURITUS [None]
  - RASH [None]
